FAERS Safety Report 6963654-1 (Version None)
Quarter: 2010Q3

REPORT INFORMATION
  Report Type: 
  Country: None (occurrence: None)
  Receive Date: 20100902
  Receipt Date: 20100820
  Transmission Date: 20110219
  Serious: Yes (Hospitalization)
  Sender: FDA-Public Use
  Company Number: US-ELI_LILLY_AND_COMPANY-US201008007312

PATIENT
  Sex: Female

DRUGS (12)
  1. FORTEO [Suspect]
     Indication: OSTEOPOROSIS
     Dosage: 20 UG, DAILY (1/D)
  2. PLAVIX [Concomitant]
  3. SPIRONOLACTONE [Concomitant]
  4. LEXAPRO [Concomitant]
     Dosage: 10 MG, UNK
  5. ASPIRIN [Concomitant]
     Dosage: 81 MG, UNK
  6. NEURONTIN [Concomitant]
     Dosage: 300 MG, UNK
  7. TRIHEXYPHENIDYL HCL [Concomitant]
     Dosage: 2 MG, 3/D
  8. TAMOXIFEN CITRATE [Concomitant]
  9. SINGULAIR [Concomitant]
     Dosage: 10 MG, UNK
  10. ZANTAC [Concomitant]
  11. NAMENDA [Concomitant]
  12. DORZOLAMIDE [Concomitant]
     Indication: GLAUCOMA
     Route: 047

REACTIONS (1)
  - FALL [None]
